FAERS Safety Report 5505594-0 (Version None)
Quarter: 2007Q4

REPORT INFORMATION
  Report Type: 
  Country: None (occurrence: None)
  Receive Date: 20071102
  Receipt Date: 20071024
  Transmission Date: 20080405
  Serious: Yes (Hospitalization)
  Sender: FDA-Public Use
  Company Number: US-PFIZER INC-2006150326

PATIENT
  Sex: Female
  Weight: 87.1 kg

DRUGS (12)
  1. CELEBREX [Suspect]
     Indication: PAIN
  2. BEXTRA [Suspect]
     Indication: PAIN
  3. VIOXX [Suspect]
     Indication: OSTEOARTHRITIS
     Route: 048
     Dates: start: 20000101
  4. NAPROXEN [Concomitant]
     Dates: start: 20010505, end: 20051103
  5. ACETAMINOPHEN AND OXYCODONE HCL [Concomitant]
     Indication: PAIN
     Dates: start: 20010131, end: 20030120
  6. CARISOPRODOL [Concomitant]
     Indication: PAIN
     Dates: start: 19930101
  7. NORVASC [Concomitant]
     Dates: start: 19930101, end: 20060101
  8. FUROSEMIDE [Concomitant]
     Dates: start: 19970101, end: 20040528
  9. NITROQUICK [Concomitant]
     Indication: CHEST PAIN
     Dates: start: 20020401
  10. HYDROCODONE BITARTRATE + ACETAMINOPHEN [Concomitant]
     Indication: PAIN
     Dates: start: 19991105, end: 20051103
  11. ESTRADIOL [Concomitant]
     Dates: start: 19991104, end: 20040331
  12. LEVOTHROID [Concomitant]
     Indication: HORMONE THERAPY
     Dates: start: 20010705, end: 20021216

REACTIONS (2)
  - CEREBROVASCULAR ACCIDENT [None]
  - TRANSIENT ISCHAEMIC ATTACK [None]
